FAERS Safety Report 7056636-5 (Version None)
Quarter: 2010Q4

REPORT INFORMATION
  Report Type: 
  Country: None (occurrence: None)
  Receive Date: 20101021
  Receipt Date: 20101020
  Transmission Date: 20110411
  Serious: Yes (Death)
  Sender: FDA-Public Use
  Company Number: JP-AMGEN LTD.-JPNCT2010000404

PATIENT

DRUGS (5)
  1. PANITUMUMAB [Suspect]
     Indication: COLORECTAL CANCER
     Dosage: 6 MG/KG, Q2WK
     Route: 041
     Dates: start: 20100630, end: 20100630
  2. MINOCYCLINE HCL [Concomitant]
     Dosage: UNK
     Route: 048
  3. MYSER OINTMENT [Concomitant]
     Dosage: UNK
     Route: 062
  4. LOCOID CREAM [Concomitant]
     Dosage: UNK
     Route: 062
  5. HIRUDOID LOTION [Concomitant]
     Dosage: UNK
     Route: 062

REACTIONS (4)
  - COLORECTAL CANCER [None]
  - DECREASED APPETITE [None]
  - NEUROPATHY PERIPHERAL [None]
  - STOMATITIS [None]
